FAERS Safety Report 16462768 (Version 1)
Quarter: 2019Q2

REPORT INFORMATION
  Report Type: Spontaneous
  Country: US (occurrence: US)
  Receive Date: 20190621
  Receipt Date: 20190621
  Transmission Date: 20190711
  Serious: Yes (Other)
  Sender: FDA-Public Use
  Company Number: US-TEVA-2019-US-1065972

PATIENT
  Sex: Female

DRUGS (1)
  1. COPAXONE [Suspect]
     Active Substance: GLATIRAMER ACETATE
     Indication: MULTIPLE SCLEROSIS RELAPSE
     Route: 065

REACTIONS (5)
  - Bladder disorder [Unknown]
  - Hypoaesthesia [Unknown]
  - Muscular weakness [Unknown]
  - Fatigue [Unknown]
  - Multiple sclerosis [Unknown]
